FAERS Safety Report 4356350-0 (Version None)
Quarter: 2004Q2

REPORT INFORMATION
  Report Type: 
  Country: None (occurrence: None)
  Receive Date: 20040506
  Receipt Date: 20030903
  Transmission Date: 20050107
  Serious: Yes (Other)
  Sender: FDA-Public Use
  Company Number: 200310294BNE

PATIENT
  Age: 37 Year
  Sex: Female
  Weight: 65 kg

DRUGS (3)
  1. CANESTEN FLUCONAZOLE ORAL CAPSULE (FLUCONAZOLE) [Suspect]
     Indication: VAGINAL CANDIDIASIS
     Dosage: 150 MG, ONCE, ORAL
     Route: 048
     Dates: start: 20030709
  2. ZIRTEK [Concomitant]
  3. MICORGYNON/GFR/ [Concomitant]

REACTIONS (1)
  - CONVULSION [None]
